FAERS Safety Report 8662754 (Version 3)
Quarter: 2012Q4

REPORT INFORMATION
  Report Type: 
  Country: DK (occurrence: JP)
  Receive Date: 20120712
  Receipt Date: 20120831
  Transmission Date: 20130627
  Serious: Yes (Hospitalization)
  Sender: FDA-Public Use
  Company Number: JP-SHIRE-ALL1-2012-03278

PATIENT
  Age: 73 Year
  Sex: Male

DRUGS (5)
  1. 426 (MIDODRINE) [Suspect]
     Indication: ORTHOSTATIC HYPOTENSION
     Dosage: 2 mg, 4x/day:qid
     Route: 048
  2. RISUMIC [Concomitant]
     Indication: ORTHOSTATIC HYPOTENSION
     Dosage: 10 mg, 2x/day:bid
     Route: 065
  3. DIHYDERGOT                         /00017802/ [Concomitant]
     Indication: ORTHOSTATIC HYPOTENSION
     Dosage: 3 DF, 3x/day:tid
     Route: 048
  4. EFFORTIL [Concomitant]
     Indication: ORTHOSTATIC HYPOTENSION
     Dosage: 5 mg, Other (6 times daily)
     Route: 048
  5. DOPS [Concomitant]
     Indication: ORTHOSTATIC HYPOTENSION
     Dosage: 100 mg, Other (12 times daily)
     Route: 048

REACTIONS (5)
  - Infection susceptibility increased [Recovered/Resolved]
  - Pneumonia [Recovered/Resolved]
  - Intestinal obstruction [Recovered/Resolved]
  - Colitis ischaemic [Recovered/Resolved]
  - Diverticulitis [Recovered/Resolved]
